FAERS Safety Report 8835244 (Version 1)
Quarter: 2012Q4

REPORT INFORMATION
  Report Type: 
  Country: US (occurrence: US)
  Receive Date: 20121011
  Receipt Date: 20121011
  Transmission Date: 20130627
  Serious: Yes (Other)
  Sender: FDA-Public Use
  Company Number: US-PFIZER INC-2012243544

PATIENT
  Sex: Female

DRUGS (1)
  1. ROBITUSSIN [Suspect]
     Dosage: UNK

REACTIONS (6)
  - Throat tightness [Unknown]
  - Apparent death [Unknown]
  - Malaise [Unknown]
  - Throat irritation [Unknown]
  - Dysphagia [Unknown]
  - Pain [Unknown]
